FAERS Safety Report 5118978-X (Version None)
Quarter: 2006Q3

REPORT INFORMATION
  Report Type: 
  Country: None (occurrence: None)
  Receive Date: 20060927
  Receipt Date: 20060908
  Transmission Date: 20061208
  Serious: Yes (Other)
  Sender: FDA-Public Use
  Company Number: EMR64300002-39

PATIENT
  Age: 55 Year
  Sex: Male

DRUGS (6)
  1. NIASPAN [Suspect]
     Indication: DYSLIPIDAEMIA
     Dosage: 1000 MG QD PO
     Route: 048
     Dates: start: 20051115, end: 20060405
  2. COSAAR PLUS [Concomitant]
  3. CONCOR [Concomitant]
  4. LASIX [Concomitant]
  5. NORMOXIN [Concomitant]
  6. NORVASC [Concomitant]

REACTIONS (4)
  - ERYTHEMA [None]
  - MALAISE [None]
  - PRURITUS [None]
  - THERAPY NON-RESPONDER [None]
